FAERS Safety Report 7437545-6 (Version None)
Quarter: 2011Q2

REPORT INFORMATION
  Report Type: 
  Country: None (occurrence: None)
  Receive Date: 20110426
  Receipt Date: 20110413
  Transmission Date: 20111010
  Serious: Yes (Other)
  Sender: FDA-Public Use
  Company Number: AR-SANOFI-AVENTIS-2011SA018418

PATIENT
  Age: 65 Year
  Sex: Female

DRUGS (13)
  1. INSULIN [Concomitant]
     Route: 058
  2. ENALAPRIL [Concomitant]
  3. DIGOXIN [Concomitant]
  4. SIMVASTATIN [Concomitant]
  5. LEVOTHYROXINE SODIUM [Concomitant]
  6. DRONEDARONE HCL [Suspect]
     Indication: ATRIAL FIBRILLATION
     Route: 048
     Dates: end: 20110324
  7. ACENOCOUMAROL [Concomitant]
     Dosage: 14 MG WEEKLY
     Route: 048
  8. ESPIRONOLACTONA [Concomitant]
  9. CARVEDILOL [Concomitant]
  10. CLOPIDOGREL [Concomitant]
  11. RANITIDINA [Concomitant]
  12. FUROSEMIDE [Concomitant]
  13. ASPIRIN [Concomitant]
     Route: 048

REACTIONS (1)
  - RENAL FAILURE ACUTE [None]
